FAERS Safety Report 6179775-X (Version None)
Quarter: 2009Q2

REPORT INFORMATION
  Report Type: 
  Country: None (occurrence: None)
  Receive Date: 20090505
  Receipt Date: 20090423
  Transmission Date: 20091009
  Serious: Yes (Hospitalization)
  Sender: FDA-Public Use
  Company Number: AR-PFIZER INC-2009204323

PATIENT

DRUGS (6)
  1. SUNITINIB MALATE [Suspect]
     Indication: RENAL CANCER
     Dosage: 25 MG, 1X/DAY
     Route: 048
     Dates: start: 20090401
  2. VALPROIC ACID [Concomitant]
     Dosage: 250 MG, UNK
     Route: 048
     Dates: start: 20090409
  3. OMEPRAZOLE [Concomitant]
     Dosage: UNK
     Route: 048
     Dates: start: 20071201
  4. TRAMADOL [Concomitant]
     Dosage: 50 MG, UNK
     Route: 048
     Dates: start: 20081103
  5. CALCIUM [Concomitant]
     Dosage: UNK
     Route: 048
     Dates: start: 20080402
  6. IRON [Concomitant]
     Route: 030
     Dates: start: 20090306, end: 20090420

REACTIONS (1)
  - CONVULSION [None]
